FAERS Safety Report 6551149-9 (Version None)
Quarter: 2010Q1

REPORT INFORMATION
  Report Type: 
  Country: None (occurrence: None)
  Receive Date: 20100121
  Receipt Date: 20100108
  Transmission Date: 20100710
  Serious: Yes (Other)
  Sender: FDA-Public Use
  Company Number: GB-1180372

PATIENT
  Age: 62 Year
  Sex: Male

DRUGS (14)
  1. BSS (BSS) OPHTHALMIC SOLUTION IRRIGATION SOLUTION [Suspect]
     Indication: EYE IRRIGATION
     Dosage: 500 ML INTRAOCULAR
     Route: 031
     Dates: start: 20070402, end: 20070402
  2. EPINEPHRINE [Suspect]
     Indication: EYE IRRIGATION
     Dosage: 0.3 ML OPHTHALMIC
     Route: 047
     Dates: start: 20070402, end: 20070402
  3. BETAMETHASONE [Suspect]
     Indication: POSTOPERATIVE CARE
     Dosage: OPHTHALMIC
     Route: 047
     Dates: start: 20070402, end: 20070402
  4. CYCLOPENTOLATE HCL [Suspect]
     Indication: PREOPERATIVE CARE
     Dosage: OPHTHALMIC
     Route: 047
     Dates: start: 20070402, end: 20070402
  5. HYALURONATE SODIUM (HYALURONATE SODIUM) [Suspect]
     Indication: CATARACT OPERATION
     Dosage: OPHTHALMIC
     Route: 047
     Dates: start: 20070402, end: 20070402
  6. LIDOCAINE [Suspect]
     Indication: ANAESTHESIA PROCEDURE
     Dosage: OPHTHALMIC
     Route: 047
     Dates: start: 20070402, end: 20070402
  7. NEOMYCIN [Suspect]
     Indication: POSTOPERATIVE CARE
     Dosage: OPHTHALMIC
     Route: 047
     Dates: start: 20040402, end: 20070402
  8. OCUFEN [Suspect]
     Indication: PREOPERATIVE CARE
     Dosage: OPHTHALMIC
     Route: 047
     Dates: start: 20040402, end: 20070402
  9. OCUFEN [Suspect]
  10. OCUFEN [Suspect]
  11. PHENYLEPHRINE (PHENYLEPHRINE) 2.5% [Suspect]
     Indication: PREOPERATIVE CARE
     Dosage: OPHTHALMIC
     Route: 047
     Dates: start: 20070402, end: 20070402
  12. POVIDONE IODINE [Suspect]
     Indication: CATARACT OPERATION
     Dosage: OPHTHALMIC
     Route: 047
     Dates: start: 20070402, end: 20070402
  13. PROXYMETACAINE (PROXYMEACAINE) [Suspect]
     Indication: ANALGESIC THERAPY
     Dosage: OPHTHALMIC
     Route: 047
     Dates: start: 20070402, end: 20070402
  14. VANCOMYCIN [Suspect]
     Indication: EYE IRRIGATION
     Dosage: 10 MG, OPHTHALMIC
     Route: 047
     Dates: start: 20070402, end: 20070402

REACTIONS (1)
  - TOXIC ANTERIOR SEGMENT SYNDROME [None]
